FAERS Safety Report 8037863-7 (Version None)
Quarter: 2012Q1

REPORT INFORMATION
  Report Type: 
  Country: None (occurrence: None)
  Receive Date: 20120111
  Receipt Date: 20120105
  Transmission Date: 20120608
  Serious: Yes (Hospitalization, Other)
  Sender: FDA-Public Use
  Company Number: PHHO2010US13126

PATIENT
  Sex: Female
  Weight: 71.8 kg

DRUGS (5)
  1. PREDNISONE TAB [Suspect]
  2. INSULIN [Concomitant]
  3. MYCOPHENOLATE MOFETIL [Suspect]
     Indication: RENAL TRANSPLANT
     Dosage: 1000 MG, BID
     Route: 048
     Dates: start: 20100805
  4. PROGRAF [Concomitant]
  5. LANTUS [Concomitant]

REACTIONS (2)
  - WOUND DEHISCENCE [None]
  - INCISION SITE HAEMORRHAGE [None]
